FAERS Safety Report 5493283-0 (Version None)
Quarter: 2007Q4

REPORT INFORMATION
  Report Type: 
  Country: None (occurrence: None)
  Receive Date: 20071022
  Receipt Date: 20071022
  Transmission Date: 20080405
  Serious: Yes (Hospitalization)
  Sender: FDA-Public Use
  Company Number: None

PATIENT
  Sex: Female
  Weight: 92.5338 kg

DRUGS (1)
  1. ZOMETA [Suspect]
     Indication: BREAST CANCER
     Dosage: 4MG/ML, 300ML/HOUR IV
     Route: 042
     Dates: start: 20070924, end: 20070925

REACTIONS (8)
  - BLOOD PRESSURE INCREASED [None]
  - CHEST DISCOMFORT [None]
  - FEELING COLD [None]
  - LIVEDO RETICULARIS [None]
  - SKIN DISCOLOURATION [None]
  - TREMOR [None]
  - VOMITING [None]
  - YAWNING [None]
